FAERS Safety Report 16659235 (Version 2)
Quarter: 2019Q3

REPORT INFORMATION
  Report Type: Spontaneous
  Country: BE (occurrence: BE)
  Receive Date: 20190802
  Receipt Date: 20190831
  Transmission Date: 20191004
  Serious: Yes (Life-Threatening, Hospitalization, Congenital Anomaly, Other)
  Sender: FDA-Public Use
  Company Number: BE-AUROBINDO-AUR-APL-2019-043126

PATIENT

DRUGS (16)
  1. TARADYL [Suspect]
     Active Substance: KETOROLAC TROMETHAMINE
     Indication: ANALGESIC THERAPY
     Dosage: 30 MILLIGRAM, TOTAL
     Route: 042
     Dates: start: 20190311, end: 20190311
  2. TRACRIUM [Concomitant]
     Active Substance: ATRACURIUM BESYLATE
     Indication: SURGERY
     Dosage: 50 MILLIGRAM, TOTAL
     Route: 042
     Dates: start: 20190311, end: 20190311
  3. PARACETAMOL [Suspect]
     Active Substance: ACETAMINOPHEN
     Indication: PERIOPERATIVE ANALGESIA
     Dosage: 2 GRAM, ONCE A DAY
     Route: 048
     Dates: start: 20190311, end: 20190314
  4. CATAPRESSAN [Concomitant]
     Active Substance: CLONIDINE
     Indication: PRODUCT USED FOR UNKNOWN INDICATION
     Dosage: 300 MICROGRAM, TOTAL
     Route: 042
     Dates: start: 20190311, end: 20190311
  5. PROPOLIPID [Concomitant]
     Active Substance: PROPOFOL
     Indication: INDUCTION OF ANAESTHESIA
     Dosage: 200 MILLIGRAM, TOTAL
     Route: 042
     Dates: start: 20190311, end: 20190311
  6. PARACETAMOL [Suspect]
     Active Substance: ACETAMINOPHEN
     Indication: ANALGESIC THERAPY
     Dosage: 1 GRAM, TOTAL
     Route: 042
     Dates: start: 20190311, end: 20190311
  7. PARACETAMOL [Suspect]
     Active Substance: ACETAMINOPHEN
     Dosage: UNK
  8. DEXAMETHASONE. [Concomitant]
     Active Substance: DEXAMETHASONE
     Indication: GASTROINTESTINAL DISORDER PROPHYLAXIS
     Dosage: 4 MILLIGRAM, TOTAL
     Route: 042
     Dates: start: 20190311, end: 20190311
  9. CEFAZOLINE [Suspect]
     Active Substance: CEFAZOLIN SODIUM
     Indication: ANTIBIOTIC PROPHYLAXIS
     Dosage: 2 GRAM, TOTAL
     Route: 042
     Dates: start: 20190311, end: 20190311
  10. CEFAZOLINE [Suspect]
     Active Substance: CEFAZOLIN SODIUM
     Indication: SURGERY
  11. LITICAN [Concomitant]
     Active Substance: ALIZAPRIDE HYDROCHLORIDE
     Indication: NAUSEA
     Dosage: 50 MILLIGRAM, TOTAL
     Route: 042
     Dates: start: 20190311, end: 20190311
  12. PROPOLIPID [Concomitant]
     Active Substance: PROPOFOL
     Indication: SURGERY
  13. KETAMINE [Concomitant]
     Active Substance: KETAMINE
     Indication: SURGERY
     Dosage: 100 MILLIGRAM, TOTAL
     Route: 042
     Dates: start: 20190311, end: 20190311
  14. IBUPROFEN FILM-COATED TABLETS [Suspect]
     Active Substance: IBUPROFEN
     Indication: ANALGESIC THERAPY
     Dosage: 3 DOSAGE FORM, ONCE A DAY (DOSE INCONNUE 3 COMPRIMES 3X/J PDT 3-4 JOURS POST OP)
     Route: 048
     Dates: start: 20190311, end: 20190314
  15. SEVORANE [Suspect]
     Active Substance: SEVOFLURANE
     Indication: GENERAL ANAESTHESIA
     Dosage: 40 MILLILITER, TOTAL
     Route: 055
     Dates: start: 20190311, end: 20190311
  16. LISINOPRIL. [Concomitant]
     Active Substance: LISINOPRIL
     Indication: SURGERY
     Dosage: 100 MILLIGRAM, TOTAL, LISINOPRIL 2%,
     Route: 042
     Dates: start: 20190311, end: 20190311

REACTIONS (9)
  - Hepatitis fulminant [Recovering/Resolving]
  - Drug hypersensitivity [Recovering/Resolving]
  - Pruritus [Recovering/Resolving]
  - Coagulopathy [Recovering/Resolving]
  - Asthenia [Recovering/Resolving]
  - Pruritus generalised [Recovering/Resolving]
  - Hepatic encephalopathy [Recovering/Resolving]
  - Acne [Recovering/Resolving]
  - Jaundice [Recovering/Resolving]

NARRATIVE: CASE EVENT DATE: 20190313
